FAERS Safety Report 14233793 (Version 1)
Quarter: 2017Q4

REPORT INFORMATION
  Report Type: Spontaneous
  Country: AR (occurrence: AR)
  Receive Date: 20171129
  Receipt Date: 20171129
  Transmission Date: 20180321
  Serious: Yes (Other)
  Sender: FDA-Public Use
  Company Number: AR-PFIZER INC-2017508121

PATIENT
  Age: 72 Year
  Sex: Male

DRUGS (1)
  1. SUTENT [Suspect]
     Active Substance: SUNITINIB MALATE
     Indication: METASTATIC RENAL CELL CARCINOMA
     Dosage: UNK UNK, DAILY
     Dates: start: 20150113, end: 201711

REACTIONS (6)
  - Pain in extremity [Not Recovered/Not Resolved]
  - Laboratory test abnormal [Unknown]
  - Malaise [Recovered/Resolved]
  - Neoplasm progression [Unknown]
  - Blood calcium increased [Not Recovered/Not Resolved]
  - Spinal disorder [Not Recovered/Not Resolved]

NARRATIVE: CASE EVENT DATE: 2017
